FAERS Safety Report 6189707-6 (Version None)
Quarter: 2009Q2

REPORT INFORMATION
  Report Type: 
  Country: None (occurrence: None)
  Receive Date: 20090514
  Receipt Date: 20090504
  Transmission Date: 20091009
  Serious: Yes (Hospitalization)
  Sender: FDA-Public Use
  Company Number: PL-ROCHE-631554

PATIENT
  Sex: Female

DRUGS (3)
  1. BONIVA [Suspect]
     Indication: OSTEOPOROSIS
     Route: 042
     Dates: start: 20080901, end: 20080901
  2. SINTROM [Concomitant]
     Dosage: START DATE: REPORTED AS CHRONICALLY; INDICATION: CARDIOLOGIC DRUG
     Route: 048
  3. CALCIUM/VITAMIN D3 [Concomitant]
     Indication: OSTEOPOROSIS
     Dosage: START DATE: CHRONICALLY; FREQUENCY: 2 X 1 TABLET DAILY; DRUG VITRUM CALCIUM
     Route: 048

REACTIONS (3)
  - CHEST PAIN [None]
  - HYPOAESTHESIA [None]
  - HYPOAESTHESIA ORAL [None]
